FAERS Safety Report 17222595 (Version 1)
Quarter: 2020Q1

REPORT INFORMATION
  Report Type: Report from Study
  Country: ES (occurrence: ES)
  Receive Date: 20200102
  Receipt Date: 20200102
  Transmission Date: 20200409
  Serious: Yes (Hospitalization, Other)
  Sender: FDA-Public Use
  Company Number: ES-TEVA-2019-ES-1158913

PATIENT
  Age: 47 Year
  Sex: Female

DRUGS (3)
  1. QUETIAPINA (1136A) [Interacting]
     Active Substance: QUETIAPINE
     Indication: INTENTIONAL OVERDOSE
     Dosage: 2.7 GRAM
     Route: 048
     Dates: start: 20190624, end: 20190624
  2. TOPIRAMATO (7245A) [Suspect]
     Active Substance: TOPIRAMATE
     Indication: INTENTIONAL OVERDOSE
     Dosage: 1 GRAM
     Route: 048
     Dates: start: 20190624, end: 20190624
  3. CLONAZEPAM (635A) [Interacting]
     Active Substance: CLONAZEPAM
     Indication: INTENTIONAL OVERDOSE
     Dosage: 90 MILLIGRAM
     Route: 048
     Dates: start: 20190624, end: 20190624

REACTIONS (3)
  - Intentional overdose [Recovered/Resolved]
  - Depressed level of consciousness [Recovered/Resolved]
  - Drug interaction [Unknown]

NARRATIVE: CASE EVENT DATE: 20190625
